FAERS Safety Report 6502254-4 (Version None)
Quarter: 2009Q4

REPORT INFORMATION
  Report Type: 
  Country: None (occurrence: None)
  Receive Date: 20091216
  Receipt Date: 20091104
  Transmission Date: 20100525
  Serious: No
  Sender: FDA-Public Use
  Company Number: US-ABBOTT-09P-163-0607661-00

PATIENT
  Age: 48 Year
  Sex: Female
  Weight: 67.192 kg

DRUGS (2)
  1. TRILIPIX [Suspect]
     Indication: BLOOD CHOLESTEROL INCREASED
     Dates: start: 20091028, end: 20091104
  2. LEVOTHYROXINE SODIUM [Concomitant]
     Indication: HYPOTHYROIDISM
     Dosage: DAILY

REACTIONS (3)
  - HEADACHE [None]
  - PRURITUS [None]
  - RASH [None]
